FAERS Safety Report 18872759 (Version 1)
Quarter: 2021Q1

REPORT INFORMATION
  Report Type: Spontaneous
  Country: TH (occurrence: TH)
  Receive Date: 20210210
  Receipt Date: 20210210
  Transmission Date: 20210420
  Serious: Yes (Other)
  Sender: FDA-Public Use
  Company Number: TH-BAUSCH-BL-2021-003794

PATIENT
  Age: 40 Year
  Sex: Male

DRUGS (25)
  1. MIDAZOLAM. [Concomitant]
     Active Substance: MIDAZOLAM
     Dosage: AT 24 HOUR
  2. MIDAZOLAM. [Concomitant]
     Active Substance: MIDAZOLAM
     Indication: SEDATIVE THERAPY
     Dosage: AT 0 HOUR
  3. MAGNESIUM SULPHATE [Concomitant]
     Active Substance: MAGNESIUM SULFATE
     Indication: ASTHMA
  4. FLUTICASONE PROPIONATE/SALMETEROL [Concomitant]
     Active Substance: FLUTICASONE PROPIONATE\SALMETEROL XINAFOATE
     Indication: ASTHMA
     Dosage: 25 MCG/250 MCG
  5. CEFTRIAXONE. [Concomitant]
     Active Substance: CEFTRIAXONE
     Indication: EVIDENCE BASED TREATMENT
  6. SALBUTAMOL [Suspect]
     Active Substance: ALBUTEROL
     Indication: ASTHMA
     Dosage: 4?8 PUFFS (100 MCG/PUFF) EVERY 15?30 MIN(TOTAL DOSE: 31,500 MCG (315 PUFFS),VENTILATOR^S INSPIRATORY
  7. MIDAZOLAM. [Concomitant]
     Active Substance: MIDAZOLAM
     Dosage: AT 32 HOUR
  8. CISATRACURIUM. [Concomitant]
     Active Substance: CISATRACURIUM
     Dosage: AT 12 H
  9. MIDAZOLAM. [Concomitant]
     Active Substance: MIDAZOLAM
     Dosage: AT 12 HOUR
  10. FENTANYL. [Concomitant]
     Active Substance: FENTANYL
     Indication: SEDATIVE THERAPY
     Dosage: 0 HOUR
  11. FENTANYL. [Concomitant]
     Active Substance: FENTANYL
     Dosage: 12 HOURS
  12. PROPOFOL. [Concomitant]
     Active Substance: PROPOFOL
     Indication: SEDATIVE THERAPY
     Dosage: AT 6 HOURS
  13. PROPOFOL. [Concomitant]
     Active Substance: PROPOFOL
     Dosage: AT 12 HOURS
  14. TIOTROPIUM BROMIDE [Concomitant]
     Active Substance: TIOTROPIUM BROMIDE
     Indication: ASTHMA
     Dosage: SOFT MIST INHALER
  15. MIDAZOLAM. [Concomitant]
     Active Substance: MIDAZOLAM
     Dosage: AT 6 HOUR
  16. CISATRACURIUM. [Concomitant]
     Active Substance: CISATRACURIUM
     Indication: SEDATIVE THERAPY
     Dosage: AT 6 H
  17. FENTANYL. [Concomitant]
     Active Substance: FENTANYL
     Dosage: 24 HOURS
  18. FENTANYL. [Concomitant]
     Active Substance: FENTANYL
     Dosage: 54 HOURS
  19. PROPOFOL. [Concomitant]
     Active Substance: PROPOFOL
     Dosage: AT 24 HOURS
  20. FENTANYL. [Concomitant]
     Active Substance: FENTANYL
     Dosage: 48 HOURS
  21. FENTANYL. [Concomitant]
     Active Substance: FENTANYL
     Dosage: 6 HOURS
  22. FENTANYL. [Concomitant]
     Active Substance: FENTANYL
     Dosage: 32 HOURS
  23. PROPOFOL. [Concomitant]
     Active Substance: PROPOFOL
     Dosage: AT 32 HOURS
  24. OSELTAMIVIR [Concomitant]
     Active Substance: OSELTAMIVIR
     Indication: EVIDENCE BASED TREATMENT
  25. AZITHROMYCIN ANHYDROUS. [Concomitant]
     Active Substance: AZITHROMYCIN ANHYDROUS
     Indication: EVIDENCE BASED TREATMENT

REACTIONS (2)
  - Toxicity to various agents [Recovered/Resolved]
  - Lactic acidosis [Recovered/Resolved]
